FAERS Safety Report 6904068-X (Version None)
Quarter: 2010Q3

REPORT INFORMATION
  Report Type: 
  Country: None (occurrence: None)
  Receive Date: 20100804
  Receipt Date: 20090306
  Transmission Date: 20110219
  Serious: No
  Sender: FDA-Public Use
  Company Number: US-PFIZER INC-2009179964

PATIENT
  Sex: Female
  Weight: 136.5 kg

DRUGS (4)
  1. LYRICA [Suspect]
     Indication: FIBROMYALGIA
     Dosage: UNK
  2. LYRICA [Suspect]
     Indication: OSTEOARTHRITIS
  3. LYRICA [Suspect]
     Indication: PAIN
  4. OXYCODONE [Concomitant]
     Indication: PAIN
     Dosage: 5 MG, EVERY 4 HRS AS NEEDED

REACTIONS (2)
  - OEDEMA PERIPHERAL [None]
  - PAIN [None]
